FAERS Safety Report 6817284-2 (Version None)
Quarter: 2010Q3

REPORT INFORMATION
  Report Type: 
  Country: None (occurrence: None)
  Receive Date: 20100706
  Receipt Date: 20100622
  Transmission Date: 20110219
  Serious: Yes (Other)
  Sender: FDA-Public Use
  Company Number: US-BAYER-201026897NA

PATIENT
  Sex: Female

DRUGS (6)
  1. YASMIN [Suspect]
     Indication: PRODUCT USED FOR UNKNOWN INDICATION
     Route: 048
     Dates: start: 20080801, end: 20080901
  2. YASMIN [Suspect]
     Route: 048
     Dates: start: 20090601, end: 20090901
  3. OCELLA [Suspect]
     Indication: PRODUCT USED FOR UNKNOWN INDICATION
     Route: 048
     Dates: start: 20080801, end: 20080901
  4. OCELLA [Suspect]
     Route: 048
     Dates: start: 20090601, end: 20090901
  5. YAZ [Suspect]
     Indication: PRODUCT USED FOR UNKNOWN INDICATION
     Route: 048
     Dates: start: 20080901, end: 20090601
  6. YAZ [Suspect]
     Route: 048
     Dates: start: 20090601, end: 20090901

REACTIONS (1)
  - GALLBLADDER DISORDER [None]
